FAERS Safety Report 8918501 (Version 1)
Quarter: 2012Q4

REPORT INFORMATION
  Report Type: 
  Country: AU (occurrence: AU)
  Receive Date: 20121120
  Receipt Date: 20121120
  Transmission Date: 20130627
  Serious: Yes (Other)
  Sender: FDA-Public Use
  Company Number: AU-ELI_LILLY_AND_COMPANY-AU201211005048

PATIENT
  Age: 65 Year
  Sex: Female

DRUGS (2)
  1. BYETTA [Suspect]
     Indication: TYPE 2 DIABETES MELLITUS
     Dosage: 10 ug, bid
     Dates: start: 20120530, end: 20121022
  2. BYETTA [Suspect]
     Dosage: 5 ug, bid
     Dates: start: 20121022

REACTIONS (3)
  - Knee operation [Unknown]
  - Nausea [Recovering/Resolving]
  - Weight decreased [Unknown]
